FAERS Safety Report 17366608 (Version 1)
Quarter: 2020Q1

REPORT INFORMATION
  Report Type: Spontaneous
  Country: US (occurrence: US)
  Receive Date: 20200204
  Receipt Date: 20200204
  Transmission Date: 20200409
  Serious: Yes (Other)
  Sender: FDA-Public Use
  Company Number: US-SA-2020SA027971

PATIENT
  Age: 46 Year
  Sex: Female

DRUGS (1)
  1. DUPIXENT [Suspect]
     Active Substance: DUPILUMAB
     Indication: ASTHMA
     Dosage: UNK
     Route: 065
     Dates: start: 20200128, end: 20200128

REACTIONS (5)
  - Pain [Unknown]
  - Dyspnoea [Unknown]
  - Dizziness [Unknown]
  - Loss of consciousness [Unknown]
  - Wheezing [Unknown]

NARRATIVE: CASE EVENT DATE: 20200128
